FAERS Safety Report 8031551-9 (Version None)
Quarter: 2012Q1

REPORT INFORMATION
  Report Type: 
  Country: None (occurrence: None)
  Receive Date: 20120109
  Receipt Date: 20111230
  Transmission Date: 20120608
  Serious: Yes (Hospitalization, Other)
  Sender: FDA-Public Use
  Company Number: CA-NOVOPROD-342317

PATIENT

DRUGS (1)
  1. VAGIFEM [Suspect]
     Indication: PRODUCT USED FOR UNKNOWN INDICATION
     Dosage: 2 EVERY 1 WEEK(S)
     Route: 067

REACTIONS (3)
  - PRURITUS [None]
  - URTICARIA [None]
  - CHEST PAIN [None]
